FAERS Safety Report 8446040-7 (Version None)
Quarter: 2012Q2

REPORT INFORMATION
  Report Type: 
  Country: None (occurrence: None)
  Receive Date: 20120323
  Receipt Date: 20111006
  Transmission Date: 20120825
  Serious: Yes (Hospitalization)
  Sender: FDA-Public Use
  Company Number: 163-21880-11090222

PATIENT
  Age: 67 Year
  Sex: Male

DRUGS (2)
  1. REVLIMID [Suspect]
     Indication: MULTIPLE MYELOMA
     Dosage: 15;10 MG, 1 IN 1 D, DAILY FOR 21 DAYS  OFF 7 DAYS, PO
     Route: 048
     Dates: start: 20110801, end: 20110821
  2. REVLIMID [Suspect]
     Indication: MULTIPLE MYELOMA
     Dosage: 15;10 MG, 1 IN 1 D, DAILY FOR 21 DAYS  OFF 7 DAYS, PO
     Route: 048
     Dates: start: 20081125, end: 20110119

REACTIONS (1)
  - BACTERAEMIA [None]
